FAERS Safety Report 4274466-4 (Version None)
Quarter: 2004Q1

REPORT INFORMATION
  Report Type: 
  Country: None (occurrence: None)
  Receive Date: 20040115
  Receipt Date: 20040107
  Transmission Date: 20041129
  Serious: Yes (Hospitalization, Other)
  Sender: FDA-Public Use
  Company Number: FRWYE496507JAN04

PATIENT
  Age: 40 Year
  Sex: Male

DRUGS (3)
  1. TAZOCILLINE (PIPERACILLIN/TAZOBACTAM, INJECTION) [Suspect]
     Indication: HIV INFECTION CDC GROUP IV SUBGROUP E
     Dosage: INTRAVENOUS
     Route: 042
     Dates: start: 20030928, end: 20031001
  2. VALCYTE (VALGANCICLOVIR, ,0) [Suspect]
     Indication: HIV INFECTION CDC GROUP IV SUBGROUP E
     Dosage: ORAL
     Route: 048
  3. VIRAMUNE [Suspect]
     Indication: HIV INFECTION CDC GROUP IV SUBGROUP E
     Dosage: ORAL
     Route: 048
     Dates: start: 20030911, end: 20031007

REACTIONS (7)
  - HEPATIC ENZYME INCREASED [None]
  - HYPERSENSITIVITY [None]
  - PLATELET COUNT DECREASED [None]
  - PYREXIA [None]
  - RASH MACULO-PAPULAR [None]
  - RENAL FAILURE [None]
  - TOXIC SKIN ERUPTION [None]
